FAERS Safety Report 18591247 (Version 1)
Quarter: 2020Q4

REPORT INFORMATION
  Report Type: Spontaneous
  Country: CA (occurrence: CA)
  Receive Date: 20201208
  Receipt Date: 20201208
  Transmission Date: 20210114
  Serious: Yes (Other)
  Sender: FDA-Public Use
  Company Number: CA-SAMSUNG BIOEPIS-SB-2020-36322

PATIENT
  Age: 53 Year
  Sex: Male

DRUGS (4)
  1. ENTOCORT [Concomitant]
     Active Substance: BUDESONIDE
     Indication: PRODUCT USED FOR UNKNOWN INDICATION
     Dosage: SUSTAINED RELEASE
     Route: 065
  2. INFLIXIMAB [Suspect]
     Active Substance: INFLIXIMAB
     Indication: CROHN^S DISEASE
     Route: 042
  3. AZATHIOPRINE. [Concomitant]
     Active Substance: AZATHIOPRINE
     Indication: CROHN^S DISEASE
     Route: 048
  4. APO-AZATHIOPRINE [Concomitant]
     Active Substance: AZATHIOPRINE
     Indication: PRODUCT USED FOR UNKNOWN INDICATION
     Route: 065

REACTIONS (8)
  - Off label use [Recovered/Resolved]
  - Lower respiratory tract infection [Recovered/Resolved]
  - Oropharyngeal pain [Recovered/Resolved]
  - Condition aggravated [Recovered/Resolved]
  - Nasopharyngitis [Recovered/Resolved]
  - Malaise [Recovered/Resolved]
  - Inappropriate schedule of product administration [Recovered/Resolved]
  - Intentional product use issue [Recovered/Resolved]
